FAERS Safety Report 23425827 (Version 1)
Quarter: 2024Q1

REPORT INFORMATION
  Report Type: Report from Study
  Country: US (occurrence: US)
  Receive Date: 20240122
  Receipt Date: 20240122
  Transmission Date: 20240410
  Serious: No
  Sender: FDA-Public Use
  Company Number: US-Accord-386100

PATIENT
  Sex: Female
  Weight: 71.21 kg

DRUGS (2)
  1. CLOZAPINE [Suspect]
     Active Substance: CLOZAPINE
     Indication: Schizoaffective disorder
     Dosage: ONCE DAILY
     Route: 048
  2. LITHIUM [Concomitant]
     Active Substance: LITHIUM

REACTIONS (2)
  - Weight increased [Unknown]
  - Sedation [Unknown]
